FAERS Safety Report 15467472 (Version 1)
Quarter: 2018Q4

REPORT INFORMATION
  Report Type: Spontaneous
  Country: US (occurrence: US)
  Receive Date: 20181001
  Receipt Date: 20181001
  Transmission Date: 20190204
  Serious: Yes (Death, Hospitalization)
  Sender: FDA-Public Use
  Company Number: None

PATIENT
  Age: 17 Year
  Sex: Male
  Weight: 39.1 kg

DRUGS (6)
  1. DOXORUBICIN HYDROCHLORIDE. [Suspect]
     Active Substance: DOXORUBICIN HYDROCHLORIDE
     Dates: end: 20180824
  2. ONCASPAR [Suspect]
     Active Substance: PEGASPARGASE
     Dates: end: 20180820
  3. GLEEVEC [Suspect]
     Active Substance: IMATINIB MESYLATE
     Dates: end: 20180823
  4. DEXAMETHASONE. [Suspect]
     Active Substance: DEXAMETHASONE
     Dates: end: 20180823
  5. ZINECARD [Suspect]
     Active Substance: DEXRAZOXANE HYDROCHLORIDE
     Dates: end: 20180824
  6. METHOTREXATE. [Suspect]
     Active Substance: METHOTREXATE
     Dates: end: 20180816

REACTIONS (17)
  - Malnutrition [None]
  - Hypotension [None]
  - Septic shock [None]
  - Jaundice [None]
  - Metabolic acidosis [None]
  - Pneumomediastinum [None]
  - Pleural effusion [None]
  - Superior mesenteric artery syndrome [None]
  - Renal failure [None]
  - Pneumonia [None]
  - Blood lactic acid increased [None]
  - Subcutaneous emphysema [None]
  - Fall [None]
  - Pancytopenia [None]
  - Decreased appetite [None]
  - Dizziness [None]
  - Clostridium difficile colitis [None]

NARRATIVE: CASE EVENT DATE: 20180830
